FAERS Safety Report 10399933 (Version 2)
Quarter: 2014Q3

REPORT INFORMATION
  Report Type: Spontaneous
  Country: CN (occurrence: CN)
  Receive Date: 20140821
  Receipt Date: 20140905
  Transmission Date: 20150326
  Serious: Yes (Other)
  Sender: FDA-Public Use
  Company Number: CN-GLAXOSMITHKLINE-B1025169A

PATIENT
  Age: 10 Month
  Sex: Male
  Weight: 8.5 kg

DRUGS (3)
  1. FLIXOTIDE [Suspect]
     Active Substance: FLUTICASONE PROPIONATE
     Indication: PNEUMONIA
     Dosage: 1PUFF TWICE PER DAY
     Route: 055
     Dates: start: 201406
  2. MONTELUKAST SODIUM. [Concomitant]
     Active Substance: MONTELUKAST SODIUM
     Indication: PNEUMONIA
     Route: 048
  3. VENTOLIN [Suspect]
     Active Substance: ALBUTEROL SULFATE
     Indication: COUGH
     Route: 055
     Dates: start: 201406, end: 201406

REACTIONS (3)
  - Candida infection [Recovered/Resolved]
  - Drug administration error [Unknown]
  - Growth retardation [Unknown]

NARRATIVE: CASE EVENT DATE: 20140728
